FAERS Safety Report 12837622 (Version 2)
Quarter: 2016Q4

REPORT INFORMATION
  Report Type: Spontaneous
  Country: GB (occurrence: GB)
  Receive Date: 20161012
  Receipt Date: 20161012
  Transmission Date: 20170207
  Serious: Yes (Disabling)
  Sender: FDA-Public Use
  Company Number: GB-CIPLA LTD.-2016GB19104

PATIENT

DRUGS (2)
  1. BOOTS IBUPROFEN [Concomitant]
     Dosage: UNK
     Route: 065
  2. SERTRALINE [Suspect]
     Active Substance: SERTRALINE HYDROCHLORIDE
     Indication: DEPRESSION
     Dosage: 20 MG, UNK
     Route: 048
     Dates: start: 20160630, end: 20160810

REACTIONS (3)
  - Sensation of foreign body [Not Recovered/Not Resolved]
  - Blindness [Recovered/Resolved]
  - Vision blurred [Unknown]
